FAERS Safety Report 9735134 (Version 1)
Quarter: 2013Q4

REPORT INFORMATION
  Report Type: Spontaneous
  Country: GB (occurrence: None)
  Receive Date: 20131204
  Receipt Date: 20131204
  Transmission Date: 20140711
  Serious: Yes (Other)
  Sender: FDA-Public Use
  Company Number: 2013P1020895

PATIENT
  Age: 42 Year
  Sex: Female

DRUGS (4)
  1. ONDANSETRON [Suspect]
     Indication: NAUSEA
     Dosage: X1;IV
     Route: 042
     Dates: start: 20130413, end: 20130413
  2. CYCYLIZINE [Concomitant]
  3. FLAGYL [Concomitant]
  4. PARACETAMOL [Concomitant]

REACTIONS (4)
  - Incorrect route of drug administration [None]
  - Dyspnoea [None]
  - Panic reaction [None]
  - Ophthalmoplegia [None]
